FAERS Safety Report 8206595-4 (Version None)
Quarter: 2012Q1

REPORT INFORMATION
  Report Type: 
  Country: None (occurrence: None)
  Receive Date: 20120313
  Receipt Date: 20120305
  Transmission Date: 20120608
  Serious: Yes (Other)
  Sender: FDA-Public Use
  Company Number: GB-ASTRAZENECA-2011SE72416

PATIENT
  Age: 36 Year
  Sex: Female
  Weight: 63.7 kg

DRUGS (4)
  1. SYMBICORT [Suspect]
     Indication: ASTHMA
     Route: 055
     Dates: start: 20100819, end: 20110922
  2. FOLIC ACID [Concomitant]
  3. LACTULOSE [Concomitant]
  4. SYMBICORT [Suspect]
     Dosage: 2 DF FOUR TIMES A DAY
     Route: 055
     Dates: start: 20110922, end: 20110927

REACTIONS (2)
  - ABORTION SPONTANEOUS [None]
  - MATERNAL EXPOSURE DURING PREGNANCY [None]
